FAERS Safety Report 23688068 (Version 1)
Quarter: 2024Q1

REPORT INFORMATION
  Report Type: Spontaneous
  Country: US (occurrence: US)
  Receive Date: 20240329
  Receipt Date: 20240329
  Transmission Date: 20240410
  Serious: No
  Sender: FDA-Public Use
  Company Number: US-SA-SAC20240322000501

PATIENT
  Age: 16 Year
  Sex: Female

DRUGS (19)
  1. DUPIXENT [Suspect]
     Active Substance: DUPILUMAB
     Indication: Asthma
     Dosage: 300 MG, QOW
     Route: 058
  2. AMOXICILLIN [Concomitant]
     Active Substance: AMOXICILLIN
  3. CEFDINIR [Concomitant]
     Active Substance: CEFDINIR
  4. AZITHROMYCIN [Concomitant]
     Active Substance: AZITHROMYCIN
  5. AUGMENTIN [Concomitant]
     Active Substance: AMOXICILLIN\CLAVULANATE POTASSIUM
  6. MOMETASONE [Concomitant]
     Active Substance: MOMETASONE
  7. HYDROCORTISONE [Concomitant]
     Active Substance: HYDROCORTISONE
  8. ONDANSETRON [Concomitant]
     Active Substance: ONDANSETRON
  9. TAMSULOSIN [Concomitant]
     Active Substance: TAMSULOSIN
  10. MOMETASONE FUROATE [Concomitant]
     Active Substance: MOMETASONE FUROATE
  11. MONTELUKAST [Concomitant]
     Active Substance: MONTELUKAST SODIUM
  12. ESCITALOPRAM [Concomitant]
     Active Substance: ESCITALOPRAM OXALATE
  13. RIZATRIPTAN [Concomitant]
     Active Substance: RIZATRIPTAN
  14. CORTISPORIN (HYDROCORTISONE ACETATE\NEOMYCIN SULFATE\POLYMYXIN B SULFA [Concomitant]
     Active Substance: HYDROCORTISONE ACETATE\NEOMYCIN SULFATE\POLYMYXIN B SULFATE
  15. POLYETHYLENE GLYCOLS [Concomitant]
     Active Substance: POLYETHYLENE GLYCOLS
  16. BENZONATATE [Concomitant]
     Active Substance: BENZONATATE
  17. OMEPRAZOLE [Concomitant]
     Active Substance: OMEPRAZOLE
  18. HYOSCYAMINE [Concomitant]
     Active Substance: HYOSCYAMINE
  19. APREPITANT [Concomitant]
     Active Substance: APREPITANT

REACTIONS (6)
  - Injection site mass [Unknown]
  - Injection site induration [Unknown]
  - Dyspnoea [Unknown]
  - Injection site pain [Unknown]
  - Asthma [Unknown]
  - Drug ineffective [Unknown]

NARRATIVE: CASE EVENT DATE: 20240301
